FAERS Safety Report 7270616-6 (Version None)
Quarter: 2011Q1

REPORT INFORMATION
  Report Type: 
  Country: None (occurrence: None)
  Receive Date: 20110202
  Receipt Date: 20110124
  Transmission Date: 20110831
  Serious: Yes (Hospitalization, Congenital Anomaly)
  Sender: FDA-Public Use
  Company Number: A0881194A

PATIENT
  Sex: Male

DRUGS (1)
  1. PAXIL [Suspect]
     Indication: ANXIETY
     Route: 064

REACTIONS (12)
  - FALLOT'S TETRALOGY [None]
  - WEIGHT GAIN POOR [None]
  - ASTHMA [None]
  - TWIN PREGNANCY [None]
  - PREMATURE BABY [None]
  - CAESAREAN SECTION [None]
  - VENTRICULAR SEPTAL DEFECT [None]
  - PREMATURE RUPTURE OF MEMBRANES [None]
  - MATERNAL DRUGS AFFECTING FOETUS [None]
  - DRUG EXPOSURE DURING PREGNANCY [None]
  - PULMONARY VALVE STENOSIS [None]
  - RESPIRATORY FAILURE [None]
